FAERS Safety Report 23911119 (Version 2)
Quarter: 2024Q2

REPORT INFORMATION
  Report Type: Spontaneous
  Country: FR (occurrence: FR)
  Receive Date: 20240528
  Receipt Date: 20240606
  Transmission Date: 20240715
  Serious: Yes (Hospitalization, Other)
  Sender: FDA-Public Use
  Company Number: None

PATIENT
  Age: 49 Year
  Sex: Male

DRUGS (4)
  1. VIMPAT [Interacting]
     Active Substance: LACOSAMIDE
     Indication: Tonic clonic movements
     Dosage: 2 DOSAGE FORM (TOTAL)
     Route: 048
     Dates: start: 20240425, end: 20240425
  2. AMISULPRIDE [Interacting]
     Active Substance: AMISULPRIDE
     Indication: Schizophrenia
     Dosage: 2 DOSAGE FORM (TOTAL)
     Route: 048
     Dates: end: 20240426
  3. AMISULPRIDE [Interacting]
     Active Substance: AMISULPRIDE
     Dosage: 1 DOSAGE FORM, ONE TIME DOSE
     Route: 048
     Dates: start: 20240427
  4. HALOPERIDOL DECANOATE [Interacting]
     Active Substance: HALOPERIDOL DECANOATE
     Indication: Schizophrenia
     Dosage: 2 DOSAGE FORM (TOTAL)
     Route: 030
     Dates: start: 20240425, end: 20240425

REACTIONS (2)
  - Electrocardiogram QT prolonged [Recovered/Resolved]
  - Hypotension [Recovered/Resolved]

NARRATIVE: CASE EVENT DATE: 20240426
